FAERS Safety Report 10167415 (Version 1)
Quarter: 2014Q2

REPORT INFORMATION
  Report Type: Spontaneous
  Country: US (occurrence: None)
  Receive Date: 20140508
  Receipt Date: 20140508
  Transmission Date: 20141212
  Serious: Yes (Hospitalization, Other)
  Sender: FDA-Public Use
  Company Number: AUR-APL-2014-04654

PATIENT
  Age: 69 Year
  Sex: Female
  Weight: 46.71 kg

DRUGS (7)
  1. TRAMADOL [Suspect]
     Indication: NEURALGIA
  2. VFEND [Suspect]
     Indication: PULMONARY MYCOSIS
     Route: 048
     Dates: start: 20140109
  3. GUAIFENESIN (GUAIFENESIN) [Concomitant]
  4. LIDOCAIN HYDROCHLORIDE (LIDOCAINE HYDROCHLORIDE) [Concomitant]
  5. COUMADINE (WARFARIN SODIUM) [Concomitant]
  6. COREG (CARVEDILOL) [Concomitant]
  7. PREDNISONE (PREDNISONE) [Concomitant]

REACTIONS (2)
  - Hallucination [None]
  - Fall [None]
